FAERS Safety Report 23088973 (Version 8)
Quarter: 2024Q3

REPORT INFORMATION
  Report Type: Spontaneous
  Country: CA (occurrence: CA)
  Receive Date: 20231020
  Receipt Date: 20240718
  Transmission Date: 20241017
  Serious: Yes (Other)
  Sender: PFIZER
  Company Number: CA-PFIZER INC-202300332408

PATIENT
  Age: 91 Year
  Sex: Female

DRUGS (6)
  1. VYNDAQEL [Suspect]
     Active Substance: TAFAMIDIS MEGLUMINE
     Indication: Cardiac amyloidosis
     Dosage: 80 MG, 1X/DAY
     Route: 048
     Dates: start: 20231013, end: 202310
  2. ASPIRIN [Concomitant]
     Active Substance: ASPIRIN
     Dosage: 81 MG, FREQUENCY: UNKNOWN
     Route: 065
  3. FUROSEMIDE [Concomitant]
     Active Substance: FUROSEMIDE
     Dosage: 20 MG, FREQUENCY: UNKNOWN
     Route: 065
  4. METOPROLOL [Concomitant]
     Active Substance: METOPROLOL
     Dosage: 25 MG, FREQUENCY: UNKNOWN
     Route: 065
  5. PANTOPRAZOLE [Concomitant]
     Active Substance: PANTOPRAZOLE
     Dosage: 40 MG, FREQUENCY: UNKNOWN
     Route: 065
  6. SYNTHROID [Concomitant]
     Active Substance: LEVOTHYROXINE SODIUM
     Dosage: 1 DF, 50 MCG FREQUENCY UNKNOWN
     Route: 065

REACTIONS (8)
  - Dizziness [Unknown]
  - Limb discomfort [Unknown]
  - Nausea [Unknown]
  - Malaise [Unknown]
  - Gait disturbance [Unknown]
  - Limb discomfort [Recovering/Resolving]
  - Chest pain [Unknown]
  - Illness [Unknown]

NARRATIVE: CASE EVENT DATE: 20230101
